FAERS Safety Report 26055838 (Version 1)
Quarter: 2025Q4

REPORT INFORMATION
  Report Type: Spontaneous
  Country: US (occurrence: US)
  Receive Date: 20251118
  Receipt Date: 20251118
  Transmission Date: 20260118
  Serious: No
  Sender: SANOFI AVENTIS
  Company Number: US-SA-2025SA340678

PATIENT
  Sex: Male
  Weight: 65 kg

DRUGS (4)
  1. DUPIXENT [Suspect]
     Active Substance: DUPILUMAB
     Indication: Dermatitis atopic
     Dosage: 300 MG, QOW
     Route: 058
  2. AFREZZA [Concomitant]
     Active Substance: INSULIN HUMAN
     Dosage: UNK
  3. MAGNESIUM [MAGNESIUM CHELATE] [Concomitant]
     Dosage: UNK
  4. LINZESS [Concomitant]
     Active Substance: LINACLOTIDE
     Dosage: UNK

REACTIONS (4)
  - Blood glucose decreased [Unknown]
  - Pruritus [Unknown]
  - Discomfort [Unknown]
  - Dermatitis atopic [Unknown]
